FAERS Safety Report 5549656-0 (Version None)
Quarter: 2007Q4

REPORT INFORMATION
  Report Type: 
  Country: None (occurrence: None)
  Receive Date: 20071128
  Receipt Date: 20071002
  Transmission Date: 20080405
  Serious: Yes (Other)
  Sender: FDA-Public Use
  Company Number: 2007073632

PATIENT
  Age: 72 Year
  Sex: Female
  Weight: 72.72 kg

DRUGS (14)
  1. EXUBERA [Suspect]
     Dates: start: 20070101
  2. EXUBERA [Suspect]
  3. EXUBERA [Suspect]
  4. GLYBURIDE [Concomitant]
  5. METFORMIN HCL [Concomitant]
  6. POTASSIUM (POTASSIUM) [Concomitant]
  7. FUROSEMIDE [Concomitant]
  8. PROTONIX [Concomitant]
  9. LAMICTAL [Concomitant]
  10. ALL OTHER THERAPEUTIC PRODUCTS (ALL OTHER THERAPEUTIC PRODUCTS) [Concomitant]
  11. LUNESTA [Concomitant]
  12. CRESTOR [Concomitant]
  13. LANTUS [Concomitant]
  14. LYRICA [Concomitant]

REACTIONS (1)
  - BLOOD GLUCOSE INCREASED [None]
